FAERS Safety Report 5698746-0 (Version None)
Quarter: 2008Q2

REPORT INFORMATION
  Report Type: 
  Country: None (occurrence: None)
  Receive Date: 20080408
  Receipt Date: 20070515
  Transmission Date: 20081010
  Serious: No
  Sender: FDA-Public Use
  Company Number: US-BAYER-US-2007-017594

PATIENT
  Age: 52 Year
  Sex: Female
  Weight: 82 kg

DRUGS (4)
  1. CLIMARA [Suspect]
     Indication: HORMONE REPLACEMENT THERAPY
     Route: 062
     Dates: start: 20020101
  2. ZYRTEC [Concomitant]
     Route: 048
  3. ZOCOR [Concomitant]
     Route: 048
  4. NASACORT [Concomitant]
     Route: 045

REACTIONS (1)
  - WEIGHT INCREASED [None]
